FAERS Safety Report 26055040 (Version 1)
Quarter: 2025Q4

REPORT INFORMATION
  Report Type: Spontaneous
  Country: US (occurrence: US)
  Receive Date: 20251117
  Receipt Date: 20251117
  Transmission Date: 20260118
  Serious: Yes (Other)
  Sender: AMGEN
  Company Number: US-AMGEN-USASP2025224885

PATIENT

DRUGS (2)
  1. RITUXIMAB [Suspect]
     Active Substance: RITUXIMAB
     Indication: Optic neuritis
     Dosage: UNK
     Route: 065
  2. RITUXIMAB [Suspect]
     Active Substance: RITUXIMAB
     Indication: Myelin oligodendrocyte glycoprotein antibody-associated disease

REACTIONS (8)
  - Myelin oligodendrocyte glycoprotein antibody-associated disease [Unknown]
  - Acute disseminated encephalomyelitis [Unknown]
  - Facial paralysis [Unknown]
  - Therapy non-responder [Unknown]
  - Dysarthria [Unknown]
  - Ataxia [Unknown]
  - Hyperintensity in brain deep nuclei [Unknown]
  - Off label use [Unknown]
